FAERS Safety Report 4959842-6 (Version None)
Quarter: 2006Q1

REPORT INFORMATION
  Report Type: 
  Country: None (occurrence: None)
  Receive Date: 20060328
  Receipt Date: 20060316
  Transmission Date: 20060701
  Serious: Yes (Other)
  Sender: FDA-Public Use
  Company Number: HQWYE397217MAR06

PATIENT
  Age: 74 Year
  Sex: Male

DRUGS (1)
  1. ROFERON-A [Suspect]
     Indication: RENAL CELL CARCINOMA STAGE UNSPECIFIED
     Dosage: 6 MU 3 TIMES/WEEK
     Dates: start: 20041228, end: 20060313

REACTIONS (1)
  - ATRIAL FIBRILLATION [None]
